FAERS Safety Report 4792325-5 (Version None)
Quarter: 2005Q4

REPORT INFORMATION
  Report Type: 
  Country: None (occurrence: None)
  Receive Date: 20051007
  Receipt Date: 20050913
  Transmission Date: 20060501
  Serious: Yes (Death)
  Sender: FDA-Public Use
  Company Number: US-MERCK-0509USA01856

PATIENT
  Age: 58 Year
  Sex: Male
  Weight: 104 kg

DRUGS (3)
  1. VIOXX [Suspect]
     Route: 048
     Dates: start: 19990101, end: 20030101
  2. ASPIRIN [Concomitant]
     Route: 065
  3. [THERAPY UNSPECIFIED] [Concomitant]
     Route: 065

REACTIONS (9)
  - ACCIDENT [None]
  - ARTHRALGIA [None]
  - CARDIAC MURMUR [None]
  - DIVERTICULUM [None]
  - FALL [None]
  - HAEMATOCHEZIA [None]
  - HAEMORRHOIDS [None]
  - RECTAL POLYP [None]
  - WOUND [None]
